FAERS Safety Report 5221222-6 (Version None)
Quarter: 2007Q1

REPORT INFORMATION
  Report Type: 
  Country: None (occurrence: None)
  Receive Date: 20070126
  Receipt Date: 20070118
  Transmission Date: 20070707
  Serious: Yes (Other)
  Sender: FDA-Public Use
  Company Number: FR-PFIZER INC-2007005655

PATIENT
  Sex: Female

DRUGS (1)
  1. TAHOR [Suspect]

REACTIONS (4)
  - ACCIDENT [None]
  - ARTHRALGIA [None]
  - BONE DISORDER [None]
  - HAND FRACTURE [None]
